FAERS Safety Report 10657385 (Version 1)
Quarter: 2014Q4

REPORT INFORMATION
  Report Type: Spontaneous
  Country: US (occurrence: None)
  Receive Date: 20141216
  Receipt Date: 20141216
  Transmission Date: 20150529
  Serious: Yes (Death)
  Sender: FDA-Public Use
  Company Number: None

PATIENT
  Age: 42 Year
  Sex: Female

DRUGS (4)
  1. EXEMESTANE 25MG GRE [Suspect]
     Active Substance: EXEMESTANE
     Route: 048
     Dates: start: 20140513, end: 20141212
  2. EXEMESTANE 25MG GRE [Suspect]
     Active Substance: EXEMESTANE
     Indication: BREAST CANCER
     Route: 048
     Dates: start: 20140513, end: 20141212
  3. AFINITOR [Suspect]
     Active Substance: EVEROLIMUS
     Indication: BREAST CANCER
     Route: 048
     Dates: start: 20140513, end: 20141212
  4. AFINITOR [Suspect]
     Active Substance: EVEROLIMUS
     Indication: RENAL CANCER
     Route: 048
     Dates: start: 20140513, end: 20141212

REACTIONS (1)
  - Death [None]

NARRATIVE: CASE EVENT DATE: 20141212
